FAERS Safety Report 4885473-2 (Version None)
Quarter: 2005Q4

REPORT INFORMATION
  Report Type: 
  Country: None (occurrence: None)
  Receive Date: 20051220
  Receipt Date: 20041022
  Transmission Date: 20060501
  Serious: Yes (Other)
  Sender: FDA-Public Use
  Company Number: HQWYE062426OCT04

PATIENT
  Sex: Female
  Weight: 59.02 kg

DRUGS (2)
  1. EFFEXOR XR [Suspect]
     Indication: EPSTEIN-BARR VIRUS INFECTION
     Dosage: 75 MG 1X PER 1 DAY
     Dates: start: 20000101
  2. EFFEXOR XR [Suspect]
     Indication: TONSILLITIS
     Dosage: 75 MG 1X PER 1 DAY
     Dates: start: 20000101

REACTIONS (8)
  - DRUG WITHDRAWAL SYNDROME [None]
  - FEELING ABNORMAL [None]
  - HEADACHE [None]
  - NIGHTMARE [None]
  - NONSPECIFIC REACTION [None]
  - SOMNOLENCE [None]
  - SUICIDAL IDEATION [None]
  - WEIGHT INCREASED [None]
